FAERS Safety Report 7642236-2 (Version None)
Quarter: 2011Q3

REPORT INFORMATION
  Report Type: 
  Country: None (occurrence: None)
  Receive Date: 20110728
  Receipt Date: 20110718
  Transmission Date: 20111222
  Serious: Yes (Other)
  Sender: FDA-Public Use
  Company Number: PHHY2011US64792

PATIENT
  Sex: Female

DRUGS (10)
  1. RECLAST [Suspect]
     Dosage: UNK UKN, UNK
     Route: 042
     Dates: start: 20090801
  2. FLAXSEED OIL [Concomitant]
  3. VITAMIN D [Concomitant]
  4. RECLAST [Suspect]
     Indication: OSTEOPOROSIS
     Dosage: UNK UKN, UNK
     Route: 042
     Dates: start: 20080801
  5. NEXIUM [Suspect]
  6. CHONDROITIN [Concomitant]
  7. FOSAMAX [Suspect]
  8. CALCIUM ACETATE [Concomitant]
     Dosage: 1000 MG, COMPLETE 2 X DAY
  9. RECLAST [Suspect]
     Dosage: UNK UKN, UNK
     Route: 042
     Dates: start: 20100826
  10. MSM WITH GLUCOSAMINE [Concomitant]

REACTIONS (17)
  - FALL [None]
  - MUSCULOSKELETAL STIFFNESS [None]
  - PRURITUS [None]
  - HAEMATOMA [None]
  - MALAISE [None]
  - FEELING ABNORMAL [None]
  - NAUSEA [None]
  - HYPERSENSITIVITY [None]
  - DEMENTIA ALZHEIMER'S TYPE [None]
  - CYST [None]
  - DYSPNOEA [None]
  - BARRETT'S OESOPHAGUS [None]
  - LIMB DISCOMFORT [None]
  - MUSCLE SPASMS [None]
  - FACE INJURY [None]
  - ABNORMAL SENSATION IN EYE [None]
  - PAIN IN EXTREMITY [None]
